FAERS Safety Report 19219452 (Version 1)
Quarter: 2021Q2

REPORT INFORMATION
  Report Type: Spontaneous
  Country: US (occurrence: US)
  Receive Date: 20210506
  Receipt Date: 20210506
  Transmission Date: 20210717
  Serious: No
  Sender: FDA-Public Use
  Company Number: US-ROCHE-2645035

PATIENT
  Age: 74 Year
  Sex: Male
  Weight: 88.53 kg

DRUGS (1)
  1. ESBRIET [Suspect]
     Active Substance: PIRFENIDONE
     Indication: IDIOPATHIC PULMONARY FIBROSIS
     Route: 048
     Dates: start: 201909, end: 202006

REACTIONS (4)
  - Sunburn [Unknown]
  - Pruritus [Unknown]
  - Hyperaesthesia [Not Recovered/Not Resolved]
  - Skin exfoliation [Unknown]

NARRATIVE: CASE EVENT DATE: 202003
